FAERS Safety Report 4721874-0 (Version None)
Quarter: 2005Q3

REPORT INFORMATION
  Report Type: 
  Country: None (occurrence: None)
  Receive Date: 20050721
  Receipt Date: 20050523
  Transmission Date: 20060218
  Serious: No
  Sender: FDA-Public Use
  Company Number: US-BRISTOL-MYERS SQUIBB COMPANY-12978599

PATIENT
  Age: 54 Year
  Sex: Male
  Weight: 113 kg

DRUGS (6)
  1. WARFARIN SODIUM [Suspect]
     Indication: THROMBOSIS
     Dosage: REDUCED TO 5 MG DAILY
     Route: 048
     Dates: start: 20050128
  2. WARFARIN SODIUM [Suspect]
     Indication: PULMONARY THROMBOSIS
     Dosage: REDUCED TO 5 MG DAILY
     Route: 048
     Dates: start: 20050128
  3. LIPITOR [Concomitant]
  4. FOLIC ACID [Concomitant]
  5. NEXIUM [Concomitant]
  6. ACCUPRIL [Concomitant]

REACTIONS (1)
  - INTERNATIONAL NORMALISED RATIO INCREASED [None]
